FAERS Safety Report 7062444-1 (Version None)
Quarter: 2010Q4

REPORT INFORMATION
  Report Type: 
  Country: None (occurrence: None)
  Receive Date: 20101026
  Receipt Date: 20091026
  Transmission Date: 20110411
  Serious: No
  Sender: FDA-Public Use
  Company Number: US-PFIZER INC-2009291579

PATIENT

DRUGS (1)
  1. LIPITOR [Suspect]
     Indication: BLOOD CHOLESTEROL INCREASED
     Dates: end: 20090901

REACTIONS (2)
  - BLOOD CREATINE PHOSPHOKINASE DECREASED [None]
  - BLOOD CREATINE PHOSPHOKINASE INCREASED [None]
